FAERS Safety Report 7396540-6 (Version None)
Quarter: 2011Q1

REPORT INFORMATION
  Report Type: 
  Country: None (occurrence: None)
  Receive Date: 20110325
  Receipt Date: 20110212
  Transmission Date: 20110831
  Serious: Yes (Death)
  Sender: FDA-Public Use
  Company Number: DSA_45235_2011

PATIENT
  Sex: Male
  Weight: 68.9467 kg

DRUGS (7)
  1. XENAZINE [Suspect]
     Indication: HUNTINGTON'S DISEASE
     Dosage: (25 MG BID ORAL)
     Route: 048
     Dates: start: 20110202
  2. AMLODIPINE [Concomitant]
  3. OMEPRAZOLE [Concomitant]
  4. SEROQUEL [Concomitant]
  5. STRATTERA [Concomitant]
  6. TRIHEXYPHENIDYL HCL [Concomitant]
  7. LISINOPRIL [Concomitant]

REACTIONS (1)
  - DEATH [None]
